FAERS Safety Report 25805997 (Version 2)
Quarter: 2025Q3

REPORT INFORMATION
  Report Type: Spontaneous
  Country: US (occurrence: US)
  Receive Date: 20250916
  Receipt Date: 20250923
  Transmission Date: 20251021
  Serious: No
  Sender: ROCHE
  Company Number: US-ROCHE-10000381711

PATIENT
  Age: 65 Year
  Sex: Male
  Weight: 61 kg

DRUGS (1)
  1. CATHFLO ACTIVASE [Suspect]
     Active Substance: ALTEPLASE
     Indication: Vascular device occlusion
     Route: 042
     Dates: start: 20250903

REACTIONS (1)
  - Vascular complication associated with device [Not Recovered/Not Resolved]

NARRATIVE: CASE EVENT DATE: 20250903
